FAERS Safety Report 15897925 (Version 1)
Quarter: 2019Q1

REPORT INFORMATION
  Report Type: Spontaneous
  Country: FR (occurrence: FR)
  Receive Date: 20190201
  Receipt Date: 20190201
  Transmission Date: 20190417
  Serious: Yes (Hospitalization)
  Sender: FDA-Public Use
  Company Number: FR-TEVA-2019-FR-1005859

PATIENT
  Age: 79 Year
  Sex: Male

DRUGS (1)
  1. PREDNISONE. [Suspect]
     Active Substance: PREDNISONE
     Indication: LYME DISEASE
     Dosage: 4 MILLIGRAM DAILY;
     Route: 048
     Dates: start: 201706, end: 2018

REACTIONS (1)
  - Osteitis [Recovering/Resolving]

NARRATIVE: CASE EVENT DATE: 201810
